FAERS Safety Report 11104427 (Version 1)
Quarter: 2015Q2

REPORT INFORMATION
  Report Type: Spontaneous
  Country: CH (occurrence: CH)
  Receive Date: 20150511
  Receipt Date: 20150511
  Transmission Date: 20150821
  Serious: Yes (Hospitalization)
  Sender: FDA-Public Use
  Company Number: CH-PFIZER INC-2015101979

PATIENT
  Age: 58 Year
  Sex: Male
  Weight: 95 kg

DRUGS (5)
  1. ANTABUS DISPERGETTE [Concomitant]
     Active Substance: DISULFIRAM
     Indication: ALCOHOL ABUSE
     Dosage: 3 DF, WEEKLY
     Route: 048
     Dates: start: 20090309
  2. SINQUAN [Suspect]
     Active Substance: DOXEPIN HYDROCHLORIDE
     Indication: ANXIETY DISORDER
     Dosage: 150 MG, DAILY
     Route: 048
     Dates: start: 20090225
  3. ANTABUS DISPERGETTE [Concomitant]
     Active Substance: DISULFIRAM
     Indication: ALCOHOLISM
  4. SINQUAN [Suspect]
     Active Substance: DOXEPIN HYDROCHLORIDE
     Indication: DEPRESSION
     Dosage: 125 MG, 1X/DAY
     Route: 048
     Dates: start: 2009, end: 20090330
  5. SINQUAN [Suspect]
     Active Substance: DOXEPIN HYDROCHLORIDE
     Indication: DEPRESSION
     Dosage: 100 MG, 1X/DAY
     Route: 048
     Dates: start: 20090331

REACTIONS (3)
  - Testicular pain [Recovered/Resolved]
  - Hypomania [Recovered/Resolved]
  - Constipation [Recovered/Resolved]

NARRATIVE: CASE EVENT DATE: 20090302
